FAERS Safety Report 6601090-8 (Version None)
Quarter: 2010Q1

REPORT INFORMATION
  Report Type: 
  Country: None (occurrence: None)
  Receive Date: 20100225
  Receipt Date: 20100216
  Transmission Date: 20100710
  Serious: Yes (Hospitalization)
  Sender: FDA-Public Use
  Company Number: PHEH2010US02520

PATIENT
  Sex: Male

DRUGS (4)
  1. EXJADE [Suspect]
     Indication: IRON OVERLOAD
     Dosage: 1500 MG DAILY
     Route: 048
     Dates: start: 20100108
  2. NEUPOGEN [Concomitant]
  3. VFEND [Concomitant]
  4. SYNTHROID [Concomitant]

REACTIONS (4)
  - CELLULITIS [None]
  - INJECTION SITE INFECTION [None]
  - PNEUMONIA [None]
  - PYREXIA [None]
